FAERS Safety Report 18785670 (Version 2)
Quarter: 2021Q1

REPORT INFORMATION
  Report Type: Report from Study
  Country: US (occurrence: US)
  Receive Date: 20210125
  Receipt Date: 20210222
  Transmission Date: 20210419
  Serious: Yes (Other)
  Sender: FDA-Public Use
  Company Number: US-TAKEDA-2021TUS004512

PATIENT
  Age: 78 Year
  Sex: Male
  Weight: 81.18 kg

DRUGS (2)
  1. BORTEZOMIB. [Suspect]
     Active Substance: BORTEZOMIB
     Indication: PLASMA CELL MYELOMA
     Dosage: 1.3 MICROGRAM/SQ. METER, 1/WEEK
     Route: 058
     Dates: start: 20180428, end: 20181019
  2. BORTEZOMIB. [Suspect]
     Active Substance: BORTEZOMIB
     Dosage: 1.3 MILLIGRAM
     Route: 058
     Dates: start: 20181102

REACTIONS (1)
  - Spindle cell sarcoma [Not Recovered/Not Resolved]

NARRATIVE: CASE EVENT DATE: 20210112
